FAERS Safety Report 15728983 (Version 7)
Quarter: 2019Q3

REPORT INFORMATION
  Report Type: Report from Study
  Country: US (occurrence: US)
  Receive Date: 20181217
  Receipt Date: 20190730
  Transmission Date: 20191004
  Serious: Yes (Hospitalization, Other)
  Sender: FDA-Public Use
  Company Number: US-PFIZER INC-2018495998

PATIENT
  Age: 54 Year
  Sex: Male

DRUGS (1)
  1. XELJANZ XR [Suspect]
     Active Substance: TOFACITINIB CITRATE
     Indication: RHEUMATOID ARTHRITIS
     Dosage: 11 MG, 1X/DAY
     Route: 048
     Dates: start: 201810

REACTIONS (12)
  - Condition aggravated [Unknown]
  - Hypertension [Unknown]
  - Haemorrhage [Unknown]
  - Fatigue [Unknown]
  - Depression [Unknown]
  - Epistaxis [Unknown]
  - Malaise [Unknown]
  - Musculoskeletal stiffness [Unknown]
  - Fall [Unknown]
  - Sinusitis [Unknown]
  - Product dose omission [Unknown]
  - Rheumatoid arthritis [Unknown]

NARRATIVE: CASE EVENT DATE: 2018
